FAERS Safety Report 7719800-5 (Version None)
Quarter: 2011Q3

REPORT INFORMATION
  Report Type: 
  Country: None (occurrence: None)
  Receive Date: 20110831
  Receipt Date: 20110817
  Transmission Date: 20111222
  Serious: No
  Sender: FDA-Public Use
  Company Number: US-BIOGENIDEC-2011BI003673

PATIENT
  Age: 30 Year
  Sex: Female

DRUGS (3)
  1. TYSABRI [Suspect]
     Indication: MULTIPLE SCLEROSIS
     Route: 042
     Dates: start: 20110113
  2. AVONEX [Concomitant]
     Indication: MULTIPLE SCLEROSIS
     Route: 030
     Dates: start: 20070925
  3. AVONEX [Concomitant]
     Route: 030

REACTIONS (16)
  - LOSS OF CONSCIOUSNESS [None]
  - GLARE [None]
  - HEADACHE [None]
  - NERVOUS SYSTEM DISORDER [None]
  - SWELLING [None]
  - SKIN BACTERIAL INFECTION [None]
  - BALANCE DISORDER [None]
  - DEPRESSION [None]
  - MULTIPLE SCLEROSIS RELAPSE [None]
  - FATIGUE [None]
  - SKIN TIGHTNESS [None]
  - SKIN LESION [None]
  - STAPHYLOCOCCAL INFECTION [None]
  - MOBILITY DECREASED [None]
  - HYPERSOMNIA [None]
  - NAUSEA [None]
